FAERS Safety Report 11634197 (Version 3)
Quarter: 2015Q4

REPORT INFORMATION
  Report Type: Spontaneous
  Country: FR (occurrence: FR)
  Receive Date: 20151015
  Receipt Date: 20151210
  Transmission Date: 20160304
  Serious: Yes (Hospitalization)
  Sender: FDA-Public Use
  Company Number: PHHY2015FR037811

PATIENT
  Age: 14 Year
  Sex: Male
  Weight: 36 kg

DRUGS (6)
  1. RENITEC//ENALAPRIL MALEATE [Concomitant]
     Indication: PRODUCT USED FOR UNKNOWN INDICATION
     Dosage: 5 MG, BID
     Route: 048
  2. VOTUBIA [Suspect]
     Active Substance: EVEROLIMUS
     Indication: ANGIOMYOLIPOMA
     Dosage: 5 MG
     Route: 048
     Dates: start: 20150323
  3. TEGRETOL [Concomitant]
     Active Substance: CARBAMAZEPINE
     Dosage: 200 MG, BID
     Route: 048
  4. TEGRETOL [Concomitant]
     Active Substance: CARBAMAZEPINE
     Indication: PRODUCT USED FOR UNKNOWN INDICATION
     Dosage: 400 MG
     Route: 048
  5. VOTUBIA [Suspect]
     Active Substance: EVEROLIMUS
     Dosage: 12.5 MG, QD
     Route: 048
     Dates: end: 20150918
  6. VOTUBIA [Suspect]
     Active Substance: EVEROLIMUS
     Dosage: 12.5 MG, QD
     Route: 048
     Dates: start: 20151030

REACTIONS (5)
  - Drug administered to patient of inappropriate age [Not Recovered/Not Resolved]
  - Lymphadenitis [Recovered/Resolved]
  - Mass [Not Recovered/Not Resolved]
  - Pain [Unknown]
  - Klebsiella infection [Recovering/Resolving]

NARRATIVE: CASE EVENT DATE: 20150323
